FAERS Safety Report 8423843-6 (Version None)
Quarter: 2012Q2

REPORT INFORMATION
  Report Type: 
  Country: None (occurrence: None)
  Receive Date: 20120608
  Receipt Date: 20110707
  Transmission Date: 20120825
  Serious: No
  Sender: FDA-Public Use
  Company Number: US-ASTRAZENECA-2010SE24645

PATIENT
  Age: 82 Year
  Sex: Female

DRUGS (3)
  1. LORAZEPAM [Concomitant]
  2. SEDATIVE [Concomitant]
  3. ATACAND [Suspect]
     Route: 048

REACTIONS (4)
  - DIZZINESS [None]
  - THROAT IRRITATION [None]
  - MUSCULAR WEAKNESS [None]
  - HALLUCINATION [None]
